FAERS Safety Report 8977582 (Version 1)
Quarter: 2012Q4

REPORT INFORMATION
  Report Type: 
  Country: FR (occurrence: FR)
  Receive Date: 20121219
  Receipt Date: 20121219
  Transmission Date: 20130627
  Serious: Yes (Hospitalization)
  Sender: FDA-Public Use
  Company Number: FR-ASTRAZENECA-2012SE93542

PATIENT
  Age: 22645 Day
  Sex: Male

DRUGS (14)
  1. ATACAND [Suspect]
     Route: 048
     Dates: end: 20120503
  2. OMNIPAQUE [Suspect]
     Route: 042
     Dates: start: 20120531, end: 20120531
  3. PROFENID [Suspect]
     Route: 042
     Dates: start: 20120525, end: 20120526
  4. DUOPLAVIN [Concomitant]
  5. PENTOXIFILLINE [Concomitant]
  6. TOCO [Concomitant]
  7. PANTOPRAZOLE [Concomitant]
  8. TIMOFEROL [Concomitant]
  9. DOLIPRANE [Concomitant]
  10. UVEDOSE [Concomitant]
  11. LOPERAMIDE [Concomitant]
  12. POLICOSANOL [Concomitant]
  13. Q10 [Concomitant]
  14. BOSWELLIA SERRATA [Concomitant]

REACTIONS (6)
  - Renal tubular necrosis [Recovered/Resolved]
  - Arthralgia [Unknown]
  - Paraesthesia [Unknown]
  - Renal failure acute [Recovered/Resolved]
  - Pyrexia [Unknown]
  - Odynophagia [Unknown]
